FAERS Safety Report 10038689 (Version 2)
Quarter: 2014Q2

REPORT INFORMATION
  Report Type: Report from Study
  Country: US (occurrence: US)
  Receive Date: 20140326
  Receipt Date: 20140507
  Transmission Date: 20141212
  Serious: Yes (Death)
  Sender: FDA-Public Use
  Company Number: PHEH2014US005911

PATIENT
  Age: 57 Year
  Sex: Male
  Weight: 117 kg

DRUGS (7)
  1. GLEEVEC [Suspect]
     Indication: RECTOSIGMOID CANCER
     Dosage: 400 MG, QD
     Route: 048
     Dates: start: 20130515
  2. GLEEVEC [Suspect]
     Dosage: 800 MG, DAILY
     Route: 048
  3. METFORMIN [Concomitant]
     Dosage: 1000 MG, BID
     Route: 048
  4. FISH OIL [Concomitant]
     Dosage: 900 MG, UNK
     Route: 048
  5. FISH OIL [Concomitant]
     Dosage: 1400 MG, DAILY
     Route: 048
  6. HYDROCHLOROTHIAZIDE [Concomitant]
     Dosage: 25 MG, DAILY 9 HRS.
     Route: 048
  7. JANUVIA [Concomitant]
     Dosage: 100 MG, PER 9 HRS
     Route: 048

REACTIONS (1)
  - Death [Fatal]
